FAERS Safety Report 23056957 (Version 1)
Quarter: 2023Q4

REPORT INFORMATION
  Report Type: Spontaneous
  Country: US (occurrence: US)
  Receive Date: 20231012
  Receipt Date: 20231012
  Transmission Date: 20240109
  Serious: Yes (Death, Life-Threatening, Hospitalization, Other)
  Sender: FDA-Public Use
  Company Number: US-AMGEN-USASP2023178644

PATIENT
  Age: 21 Year
  Sex: Female

DRUGS (1)
  1. RITUXIMAB [Suspect]
     Active Substance: RITUXIMAB
     Indication: Neuromyelitis optica spectrum disorder
     Dosage: UNK
     Route: 065

REACTIONS (10)
  - Hypercapnia [Fatal]
  - Respiratory arrest [Fatal]
  - Seizure [Unknown]
  - Hypoxia [Unknown]
  - Aspiration [Unknown]
  - Hypoventilation [Unknown]
  - Pneumonia aspiration [Unknown]
  - Respiratory failure [Unknown]
  - Drug effective for unapproved indication [Unknown]
  - Off label use [Unknown]
